FAERS Safety Report 6076361-7 (Version None)
Quarter: 2009Q1

REPORT INFORMATION
  Report Type: 
  Country: None (occurrence: None)
  Receive Date: 20090213
  Receipt Date: 20090204
  Transmission Date: 20090719
  Serious: Yes (Death, Hospitalization)
  Sender: FDA-Public Use
  Company Number: FR-RANBAXY-2009RR-21699

PATIENT
  Age: 33 Year
  Sex: Female

DRUGS (1)
  1. MINOCYCLINE [Suspect]

REACTIONS (1)
  - DRUG RASH WITH EOSINOPHILIA AND SYSTEMIC SYMPTOMS [None]
